FAERS Safety Report 8385072-4 (Version None)
Quarter: 2012Q2

REPORT INFORMATION
  Report Type: 
  Country: None (occurrence: None)
  Receive Date: 20120524
  Receipt Date: 20120509
  Transmission Date: 20120825
  Serious: Yes (Other)
  Sender: FDA-Public Use
  Company Number: CHPA2012US008921

PATIENT
  Age: 62 Year
  Sex: Female

DRUGS (2)
  1. NICOTINE [Suspect]
     Indication: SMOKING CESSATION THERAPY
     Dosage: 14 MG, QD
     Route: 062
     Dates: start: 20120315
  2. NICOTINE [Suspect]
     Dosage: 7 MG, QD

REACTIONS (4)
  - NERVOUSNESS [None]
  - VISION BLURRED [None]
  - BLINDNESS [None]
  - CONFUSIONAL STATE [None]
